FAERS Safety Report 18044334 (Version 2)
Quarter: 2020Q3

REPORT INFORMATION
  Report Type: Spontaneous
  Country: US (occurrence: US)
  Receive Date: 20200720
  Receipt Date: 20200904
  Transmission Date: 20201103
  Serious: No
  Sender: FDA-Public Use
  Company Number: US-BEH-2020120228

PATIENT
  Sex: Female

DRUGS (2)
  1. HIZENTRA [Suspect]
     Active Substance: HUMAN IMMUNOGLOBULIN G
     Indication: IMMUNODEFICIENCY COMMON VARIABLE
     Dosage: 34 GRAM, QOW
     Route: 058
     Dates: start: 202006
  2. HIZENTRA [Suspect]
     Active Substance: HUMAN IMMUNOGLOBULIN G
     Dosage: 17 GRAM (85ML),  QW
     Route: 058

REACTIONS (4)
  - Joint swelling [Unknown]
  - Pruritus [Unknown]
  - Blood potassium increased [Unknown]
  - Periorbital swelling [Unknown]
